FAERS Safety Report 9014867 (Version 1)
Quarter: 2013Q1

REPORT INFORMATION
  Report Type: Spontaneous
  Country: US (occurrence: None)
  Receive Date: 20130109
  Receipt Date: 20130109
  Transmission Date: 20140127
  Serious: Yes (Other)
  Sender: FDA-Public Use
  Company Number: None

PATIENT
  Sex: Female
  Weight: 108.86 kg

DRUGS (1)
  1. BYDUREON [Suspect]
     Route: 058
     Dates: start: 20120809, end: 20121019

REACTIONS (3)
  - Injection site pruritus [None]
  - Injection site mass [None]
  - Rash maculo-papular [None]
